FAERS Safety Report 19854339 (Version 3)
Quarter: 2021Q4

REPORT INFORMATION
  Report Type: Report from Study
  Country: ES (occurrence: None)
  Receive Date: 20210920
  Receipt Date: 20211215
  Transmission Date: 20220303
  Serious: Yes (Death)
  Sender: FDA-Public Use
  Company Number: ES-ROCHE-2911702

PATIENT

DRUGS (14)
  1. TOCILIZUMAB [Suspect]
     Active Substance: TOCILIZUMAB
     Indication: COVID-19 pneumonia
     Dosage: 8 MG/KG IN PATIENTS WEIGHING  30 KG OR 12 MG/KG IN PATIENTS WEIGHING 30 KG AS A 60-MINUTE, IV INFUSI
     Route: 042
     Dates: start: 20200401
  2. TOCILIZUMAB [Suspect]
     Active Substance: TOCILIZUMAB
     Indication: Cytokine storm
  3. AMLODIPINE [Concomitant]
     Active Substance: AMLODIPINE BESYLATE
     Indication: Hypertension
     Dates: start: 20200501, end: 20200513
  4. ACETAMINOPHEN [Concomitant]
     Active Substance: ACETAMINOPHEN
     Indication: COVID-19
     Dates: start: 20200501, end: 20200513
  5. ENOXAPARIN [Concomitant]
     Active Substance: ENOXAPARIN
     Dates: start: 20200501, end: 20200513
  6. HYDROXYCHLOROQUINE [Concomitant]
     Active Substance: HYDROXYCHLOROQUINE
     Indication: COVID-19
     Dates: start: 20200501, end: 20200513
  7. CEFTRIAXONE [Concomitant]
     Active Substance: CEFTRIAXONE
     Indication: Pneumonia
     Dates: start: 20200501, end: 20200513
  8. AZITHROMYCIN [Concomitant]
     Active Substance: AZITHROMYCIN
     Indication: COVID-19
     Dates: start: 20200501, end: 20200506
  9. OMEPRAZOLE [Concomitant]
     Active Substance: OMEPRAZOLE
     Indication: Gastrointestinal disorder prophylaxis
     Dates: start: 20200501, end: 20200513
  10. METHYLPREDNISOLONE [Concomitant]
     Active Substance: METHYLPREDNISOLONE
     Indication: COVID-19
     Dates: start: 20200505, end: 20200513
  11. MORPHINE [Concomitant]
     Active Substance: MORPHINE
     Indication: COVID-19
     Dates: start: 20200509, end: 20200513
  12. LEVOTHYROXINE [Concomitant]
     Active Substance: LEVOTHYROXINE
     Indication: Hypothyroidism
     Dates: start: 20200506, end: 20200513
  13. ASPIRIN [Concomitant]
     Active Substance: ASPIRIN
     Indication: Transient ischaemic attack
     Dates: start: 20200506, end: 20200513
  14. ATORVASTATIN [Concomitant]
     Active Substance: ATORVASTATIN
     Indication: Transient ischaemic attack
     Dates: start: 20200506, end: 20200513

REACTIONS (1)
  - Respiratory distress [Fatal]

NARRATIVE: CASE EVENT DATE: 20200506
